FAERS Safety Report 17906883 (Version 1)
Quarter: 2020Q2

REPORT INFORMATION
  Report Type: Spontaneous
  Country: US (occurrence: US)
  Receive Date: 20200617
  Receipt Date: 20200617
  Transmission Date: 20200714
  Serious: Yes (Hospitalization)
  Sender: FDA-Public Use
  Company Number: None

PATIENT
  Sex: Female

DRUGS (8)
  1. XELJANZ [Suspect]
     Active Substance: TOFACITINIB CITRATE
     Indication: RHEUMATOID ARTHRITIS
     Route: 048
  2. METFORMIN [Concomitant]
     Active Substance: METFORMIN HYDROCHLORIDE
  3. ESTRADIOL. [Concomitant]
     Active Substance: ESTRADIOL
  4. INSULIN PUMP [Concomitant]
     Active Substance: INSULIN NOS
  5. FOLIC ACID. [Concomitant]
     Active Substance: FOLIC ACID
  6. METHOTREXATE. [Concomitant]
     Active Substance: METHOTREXATE
  7. RAMIPRIL. [Concomitant]
     Active Substance: RAMIPRIL
  8. MEDROXYPR AC [Concomitant]

REACTIONS (1)
  - Pneumonia [None]
